FAERS Safety Report 18455174 (Version 1)
Quarter: 2020Q4

REPORT INFORMATION
  Report Type: Report from Study
  Country: US (occurrence: US)
  Receive Date: 20201103
  Receipt Date: 20201103
  Transmission Date: 20210114
  Serious: Yes (Hospitalization, Other)
  Sender: FDA-Public Use
  Company Number: US-TAKEDA-2020TUS044413

PATIENT
  Age: 45 Year
  Sex: Female
  Weight: 105.99 kg

DRUGS (4)
  1. GATTEX [Suspect]
     Active Substance: TEDUGLUTIDE\WATER
     Indication: SHORT-BOWEL SYNDROME
     Dosage: 0.53 MILLILITER, QD
     Route: 050
     Dates: start: 202002, end: 202006
  2. GATTEX [Suspect]
     Active Substance: TEDUGLUTIDE\WATER
     Indication: SHORT-BOWEL SYNDROME
     Dosage: 0.53 MILLILITER, QD
     Route: 050
     Dates: start: 202002, end: 202006
  3. GATTEX [Suspect]
     Active Substance: TEDUGLUTIDE\WATER
     Indication: SHORT-BOWEL SYNDROME
     Dosage: 0.53 MILLILITER, QD
     Route: 050
     Dates: start: 202002, end: 202006
  4. GATTEX [Suspect]
     Active Substance: TEDUGLUTIDE\WATER
     Indication: SHORT-BOWEL SYNDROME
     Dosage: 0.53 MILLILITER, QD
     Route: 050
     Dates: start: 202002, end: 202006

REACTIONS (3)
  - Drug ineffective [Unknown]
  - Oedema [Unknown]
  - Cerebrovascular accident [Unknown]

NARRATIVE: CASE EVENT DATE: 202002
